FAERS Safety Report 16303986 (Version 1)
Quarter: 2019Q2

REPORT INFORMATION
  Report Type: Spontaneous
  Country: BR (occurrence: BR)
  Receive Date: 20190513
  Receipt Date: 20190513
  Transmission Date: 20190711
  Serious: Yes (Other)
  Sender: FDA-Public Use
  Company Number: BR-009507513-1905BRA002086

PATIENT
  Sex: Male

DRUGS (3)
  1. SULFAMETHOXAZOLE (+) TRIMETHOPRIM [Concomitant]
     Active Substance: SULFAMETHOXAZOLE\TRIMETHOPRIM
     Dosage: 2 TABLETS ADMINISTERED AT ONCE, EVERY MONDAY, WEDNESDAY AND FRIDAY
  2. RALTEGRAVIR POTASSIUM [Suspect]
     Active Substance: RALTEGRAVIR POTASSIUM
     Dosage: UNK
     Dates: start: 20180421
  3. LAMIVUDINE AND TENOFOVIR DISOPROXIL FUMARATE [Concomitant]
     Active Substance: LAMIVUDINE\TENOFOVIR DISOPROXIL FUMARATE
     Dosage: UNK
     Dates: start: 20180421

REACTIONS (10)
  - Latent syphilis [Unknown]
  - Strongyloidiasis [Recovered/Resolved]
  - Anaemia [Unknown]
  - Acute kidney injury [Unknown]
  - CD4 lymphocytes decreased [Unknown]
  - Ascariasis [Recovered/Resolved]
  - Drug ineffective [Unknown]
  - Blastocystis infection [Unknown]
  - Thrombocytosis [Unknown]
  - Viral load increased [Unknown]

NARRATIVE: CASE EVENT DATE: 2018
